FAERS Safety Report 23385266 (Version 1)
Quarter: 2024Q1

REPORT INFORMATION
  Report Type: Spontaneous
  Country: US (occurrence: US)
  Receive Date: 20240110
  Receipt Date: 20240110
  Transmission Date: 20240410
  Serious: Yes (Death, Hospitalization, Other)
  Sender: FDA-Public Use
  Company Number: US-ADVANZ PHARMA-202312012241

PATIENT

DRUGS (1)
  1. HYDROXYCHLOROQUINE [Suspect]
     Active Substance: HYDROXYCHLOROQUINE
     Dosage: 3 G (INGESTION)
     Route: 048

REACTIONS (10)
  - Completed suicide [Fatal]
  - Toxicity to various agents [Fatal]
  - Lactic acidosis [Unknown]
  - Hypotension [Unknown]
  - Tachycardia [Unknown]
  - Respiratory acidosis [Unknown]
  - Hypophosphataemia [Unknown]
  - Intentional overdose [Fatal]
  - Atrioventricular block complete [Unknown]
  - Hypokalaemia [Unknown]
